FAERS Safety Report 24629646 (Version 1)
Quarter: 2024Q4

REPORT INFORMATION
  Report Type: Spontaneous
  Country: IT (occurrence: IT)
  Receive Date: 20241118
  Receipt Date: 20241118
  Transmission Date: 20250115
  Serious: Yes (Other)
  Sender: DR REDDYS
  Company Number: IT-GERMAN-LIT/ITA/24/0016941

PATIENT
  Age: 77 Year
  Sex: Male

DRUGS (2)
  1. AZACITIDINE [Suspect]
     Active Substance: AZACITIDINE
     Indication: Peripheral T-cell lymphoma unspecified
     Dosage: AZACITIDINE 75 MG/M? SUBCUTANEOUSLY ON DAYS 1-5
     Route: 058
  2. ROMIDEPSIN [Suspect]
     Active Substance: ROMIDEPSIN
     Indication: Peripheral T-cell lymphoma unspecified
     Dosage: ROMIDEPSIN 14 MG/M? ON DAYS 8, 15 AND 22 OF A 35-DAY THERAPEUTIC CYCLE

REACTIONS (4)
  - Neutropenia [Unknown]
  - Dysgeusia [Unknown]
  - Asthenia [Unknown]
  - Off label use [Unknown]
